FAERS Safety Report 7040646-8 (Version None)
Quarter: 2010Q4

REPORT INFORMATION
  Report Type: 
  Country: None (occurrence: None)
  Receive Date: 20101013
  Receipt Date: 20101007
  Transmission Date: 20110411
  Serious: Yes (Hospitalization)
  Sender: FDA-Public Use
  Company Number: US-AMGEN-KDL442685

PATIENT
  Sex: Female

DRUGS (2)
  1. ENBREL [Suspect]
     Indication: RHEUMATOID ARTHRITIS
     Route: 058
  2. METHOTREXATE [Concomitant]
     Route: 048

REACTIONS (9)
  - ACNE [None]
  - ARTHRALGIA [None]
  - CARPAL TUNNEL SYNDROME [None]
  - FALL [None]
  - HIP ARTHROPLASTY [None]
  - HIP FRACTURE [None]
  - INFECTED SEBACEOUS CYST [None]
  - POST PROCEDURAL DISCHARGE [None]
  - SINUSITIS [None]
